FAERS Safety Report 21974229 (Version 1)
Quarter: 2023Q1

REPORT INFORMATION
  Report Type: Spontaneous
  Country: US (occurrence: None)
  Receive Date: 20230208
  Receipt Date: 20230208
  Transmission Date: 20230417
  Serious: Yes (Disabling, Other)
  Sender: FDA-Public Use
  Company Number: None

PATIENT
  Age: 32 Year
  Sex: Female
  Weight: 54 kg

DRUGS (1)
  1. ARTIFICIAL TEARS LUBRICANT EYE DROPS (CARBOXYMETHYLCELLULOSE SODIUM) [Suspect]
     Active Substance: CARBOXYMETHYLCELLULOSE SODIUM
     Indication: Dry eye
     Dosage: FREQUENCY : EVERY 4 HOURS;?
     Route: 047
     Dates: start: 20221206, end: 20230106

REACTIONS (8)
  - Visual impairment [None]
  - Therapy cessation [None]
  - Retinal scar [None]
  - Conjunctivitis [None]
  - Corneal disorder [None]
  - Eye inflammation [None]
  - Bacterial infection [None]
  - Eye infection bacterial [None]

NARRATIVE: CASE EVENT DATE: 20221206
